FAERS Safety Report 13671430 (Version 1)
Quarter: 2017Q2

REPORT INFORMATION
  Report Type: Spontaneous
  Country: US (occurrence: US)
  Receive Date: 20170620
  Receipt Date: 20170620
  Transmission Date: 20170830
  Serious: No
  Sender: FDA-Public Use
  Company Number: US-ROCHE-1478048

PATIENT
  Sex: Female

DRUGS (1)
  1. XELODA [Suspect]
     Active Substance: CAPECITABINE
     Indication: BREAST NEOPLASM
     Dosage: 7 DAYS ON, 7 DAYS OFF, 4 TABLETS TWICE DAILY
     Route: 048
     Dates: start: 20140206

REACTIONS (1)
  - Muscle spasms [Not Recovered/Not Resolved]
